FAERS Safety Report 4688730-8 (Version None)
Quarter: 2005Q2

REPORT INFORMATION
  Report Type: 
  Country: None (occurrence: None)
  Receive Date: 20050609
  Receipt Date: 20050609
  Transmission Date: 20051028
  Serious: Yes (Hospitalization)
  Sender: FDA-Public Use
  Company Number: None

PATIENT
  Age: 46 Year
  Sex: Female
  Weight: 86 kg

DRUGS (1)
  1. ASPIRIN [Suspect]
     Dates: start: 20050221, end: 20050222

REACTIONS (6)
  - ANAPHYLACTIC SHOCK [None]
  - ANGIONEUROTIC OEDEMA [None]
  - DYSPNOEA [None]
  - SYNCOPE [None]
  - TACHYCARDIA [None]
  - URTICARIA [None]
